FAERS Safety Report 9271675 (Version 1)
Quarter: 2013Q2

REPORT INFORMATION
  Report Type: Spontaneous
  Country: DE (occurrence: DE)
  Receive Date: 20130506
  Receipt Date: 20130506
  Transmission Date: 20140414
  Serious: Yes (Death, Life-Threatening)
  Sender: FDA-Public Use
  Company Number: DE-ROCHE-1221481

PATIENT
  Age: 77 Year
  Sex: Female

DRUGS (3)
  1. ACTILYSE [Suspect]
     Indication: VASCULAR OCCLUSION
     Route: 042
  2. HEPARIN [Concomitant]
     Indication: VASCULAR OCCLUSION
     Dosage: 5000 U
     Route: 042
  3. ASPISOL [Concomitant]
     Indication: VASCULAR OCCLUSION
     Route: 042

REACTIONS (4)
  - Haemoptysis [Unknown]
  - Pneumonia [Unknown]
  - Respiratory failure [Unknown]
  - Circulatory collapse [Fatal]
